FAERS Safety Report 7427461-8 (Version None)
Quarter: 2011Q2

REPORT INFORMATION
  Report Type: 
  Country: None (occurrence: None)
  Receive Date: 20110420
  Receipt Date: 20110310
  Transmission Date: 20111010
  Serious: Yes (Other)
  Sender: FDA-Public Use
  Company Number: US-BAYER-201015436NA

PATIENT
  Age: 33 Year
  Sex: Female
  Weight: 86.818 kg

DRUGS (23)
  1. RENAPHRO [Concomitant]
  2. GADOLINIUM IN UNSPECIFIED DRUG [Suspect]
     Indication: ANGIOGRAM
     Dosage: UNK
     Dates: start: 20050718, end: 20050718
  3. GADOLINIUM IN UNSPECIFIED DRUG [Suspect]
     Dosage: UNK
     Dates: start: 20050615, end: 20050615
  4. GABITRIL [Concomitant]
  5. PROHANCE [Suspect]
     Indication: NUCLEAR MAGNETIC RESONANCE IMAGING
     Dates: start: 20060706, end: 20060706
  6. PROHANCE [Suspect]
     Route: 042
     Dates: start: 20061207, end: 20061207
  7. MULTIHANCE [Suspect]
     Indication: NUCLEAR MAGNETIC RESONANCE IMAGING
  8. PREVACID [Concomitant]
  9. FLUDROCORTISONE [Concomitant]
  10. OMNISCAN [Suspect]
     Indication: NUCLEAR MAGNETIC RESONANCE IMAGING
  11. RENAGEL [Concomitant]
  12. NEURONTIN [Concomitant]
  13. MIDODRINE HYDROCHLORIDE [Concomitant]
  14. LYRICA [Concomitant]
  15. MAGNEVIST [Suspect]
     Indication: ANGIOGRAM
     Dates: start: 20041126, end: 20041126
  16. OPTIMARK [Suspect]
     Indication: NUCLEAR MAGNETIC RESONANCE IMAGING
  17. GADOLINIUM IN UNSPECIFIED DRUG [Suspect]
     Dosage: UNK
     Dates: start: 20040730, end: 20040730
  18. GADOLINIUM IN UNSPECIFIED DRUG [Suspect]
     Indication: ANGIOPLASTY
     Dosage: UNK
     Dates: start: 20051213, end: 20051213
  19. PLAVIX [Concomitant]
  20. PROHANCE [Suspect]
     Indication: ANGIOGRAM
     Route: 042
     Dates: start: 20061003, end: 20061003
  21. ZOLOFT [Concomitant]
  22. OXYCODONE HCL [Concomitant]
  23. FRAGMIN [Concomitant]

REACTIONS (30)
  - SKIN TIGHTNESS [None]
  - GENERAL PHYSICAL HEALTH DETERIORATION [None]
  - MYOSCLEROSIS [None]
  - BURNING SENSATION [None]
  - ABASIA [None]
  - NEPHROGENIC SYSTEMIC FIBROSIS [None]
  - MUSCLE CONTRACTURE [None]
  - SKIN PLAQUE [None]
  - EXTREMITY CONTRACTURE [None]
  - OCULAR ICTERUS [None]
  - ARTHRALGIA [None]
  - SCAR [None]
  - JOINT RANGE OF MOTION DECREASED [None]
  - SKIN INDURATION [None]
  - JOINT CONTRACTURE [None]
  - PULMONARY FIBROSIS [None]
  - OEDEMA PERIPHERAL [None]
  - SKIN DISCOLOURATION [None]
  - FIBROSIS [None]
  - SKIN HYPERTROPHY [None]
  - PAIN [None]
  - PAIN OF SKIN [None]
  - ERYTHEMA [None]
  - JOINT STIFFNESS [None]
  - SKIN HYPERPIGMENTATION [None]
  - JOINT LOCK [None]
  - MUSCULOSKELETAL STIFFNESS [None]
  - MYALGIA [None]
  - SKIN EXFOLIATION [None]
  - JOINT SWELLING [None]
